FAERS Safety Report 20420997 (Version 1)
Quarter: 2022Q1

REPORT INFORMATION
  Report Type: Spontaneous
  Country: KR (occurrence: KR)
  Receive Date: 20220203
  Receipt Date: 20220203
  Transmission Date: 20220423
  Serious: Yes (Life-Threatening, Hospitalization)
  Sender: FDA-Public Use
  Company Number: KR-PERRIGO-22KR000876

PATIENT
  Age: 76 Year

DRUGS (3)
  1. ACETAMINOPHEN [Suspect]
     Active Substance: ACETAMINOPHEN
     Indication: Product used for unknown indication
     Dosage: UNK, UNK
     Route: 048
  2. ACETYLCYSTEINE [Suspect]
     Active Substance: ACETYLCYSTEINE
     Indication: Product used for unknown indication
     Dosage: UNK, UNK
     Route: 065
  3. ALMAGATE [Suspect]
     Active Substance: ALMAGATE
     Indication: Product used for unknown indication
     Dosage: UNK, UNK
     Route: 065

REACTIONS (1)
  - Toxic epidermal necrolysis [Unknown]
